FAERS Safety Report 15272309 (Version 7)
Quarter: 2020Q3

REPORT INFORMATION
  Report Type: Report from Study
  Country: US (occurrence: US)
  Receive Date: 20180813
  Receipt Date: 20191024
  Transmission Date: 20201105
  Serious: Yes (Death, Life-Threatening, Hospitalization)
  Sender: FDA-Public Use
  Company Number: US-JNJFOC-20180801151

PATIENT
  Age: 55 Year
  Sex: Male
  Weight: 117 kg

DRUGS (22)
  1. CARDIZEM [Concomitant]
     Active Substance: DILTIAZEM HYDROCHLORIDE
     Route: 048
  2. ASA [Concomitant]
     Active Substance: ASPIRIN
     Indication: ANTIPLATELET THERAPY
     Route: 048
  3. ALLEGRA [Concomitant]
     Active Substance: FEXOFENADINE HYDROCHLORIDE
     Route: 048
  4. FLONASE [Concomitant]
     Active Substance: FLUTICASONE PROPIONATE
     Route: 045
  5. COMPAZINE [Concomitant]
     Active Substance: PROCHLORPERAZINE MALEATE
     Indication: NAUSEA
     Route: 048
  6. ALBUTEROL. [Concomitant]
     Active Substance: ALBUTEROL
     Indication: DYSPNOEA
  7. SINGULAIR [Concomitant]
     Active Substance: MONTELUKAST SODIUM
     Dosage: CYCLE 1 (DAYS 1, 8 AND 9)
     Route: 048
  8. KLOR CON M [Concomitant]
     Active Substance: POTASSIUM CHLORIDE
     Route: 048
  9. DESYREL [Concomitant]
     Active Substance: TRAZODONE HYDROCHLORIDE
     Indication: INSOMNIA
     Route: 048
  10. ELIQUIS [Concomitant]
     Active Substance: APIXABAN
     Indication: ANTICOAGULANT THERAPY
     Route: 048
  11. ALBUTEROL. [Concomitant]
     Active Substance: ALBUTEROL
     Indication: WHEEZING
  12. ZOFRAN [Concomitant]
     Active Substance: ONDANSETRON HYDROCHLORIDE
     Dosage: CYCLE 1 (DAYS 1, 8 AND 9)
     Route: 048
  13. BORTEZOMIB. [Suspect]
     Active Substance: BORTEZOMIB
     Indication: PLASMA CELL MYELOMA
     Dosage: CYCLE 1 DAYS 1, 4, 8, AND 11
     Route: 058
     Dates: start: 20180716, end: 20180723
  14. LENALIDOMIDE [Suspect]
     Active Substance: LENALIDOMIDE
     Indication: PLASMA CELL MYELOMA
     Dosage: DAYS 1?14 OF 21 DAY CYCLE
     Route: 048
     Dates: start: 20180716, end: 20180723
  15. DEXAMETHASONE. [Concomitant]
     Active Substance: DEXAMETHASONE
     Indication: PLASMA CELL MYELOMA
     Dosage: CYCLE 1 (DAYS 1, 8 AND 9)
     Route: 048
     Dates: start: 20180716, end: 20180723
  16. DARATUMUMAB [Suspect]
     Active Substance: DARATUMUMAB
     Indication: PLASMA CELL MYELOMA
     Dosage: CYCLE 1 (DAYS 1 AND 8)
     Route: 058
     Dates: start: 20180716, end: 20180723
  17. VALSARTAN HCTZ [Concomitant]
     Active Substance: HYDROCHLOROTHIAZIDE\VALSARTAN
     Route: 048
  18. CHLORTHALIDONE. [Concomitant]
     Active Substance: CHLORTHALIDONE
     Route: 065
  19. LASIX [Concomitant]
     Active Substance: FUROSEMIDE
     Route: 048
  20. ACYCLOVIR. [Concomitant]
     Active Substance: ACYCLOVIR
     Route: 048
  21. DECADRON [Concomitant]
     Active Substance: DEXAMETHASONE
     Dosage: CYCLE 1 (DAYS 1, 8 AND 9)
     Route: 048
  22. MUCINEX [Concomitant]
     Active Substance: GUAIFENESIN
     Route: 048

REACTIONS (2)
  - Respiratory failure [Fatal]
  - Fatigue [Fatal]

NARRATIVE: CASE EVENT DATE: 20180730
